FAERS Safety Report 9700633 (Version 1)
Quarter: 2013Q4

REPORT INFORMATION
  Report Type: Spontaneous
  Country: OM (occurrence: None)
  Receive Date: 20131119
  Receipt Date: 20131119
  Transmission Date: 20140711
  Serious: Yes (Hospitalization)
  Sender: FDA-Public Use
  Company Number: IMP_06874_2013

PATIENT
  Age: 66 Year
  Sex: Female

DRUGS (7)
  1. DIGOXIN (DIGOXIN) [Suspect]
     Indication: CARDIAC FAILURE CONGESTIVE
  2. FUROSEMIDE [Concomitant]
  3. SPIRONOLACTONE [Suspect]
  4. CARVEDILOL [Concomitant]
  5. LISINOPRIL [Concomitant]
  6. METFORMIN [Concomitant]
  7. CALCIUM [Concomitant]

REACTIONS (8)
  - Abdominal discomfort [None]
  - Nausea [None]
  - Vomiting [None]
  - Palpitations [None]
  - Supraventricular tachycardia [None]
  - Electrocardiogram PR prolongation [None]
  - Toxicity to various agents [None]
  - Hypomagnesaemia [None]
